APPROVED DRUG PRODUCT: ACHROMYCIN V
Active Ingredient: TETRACYCLINE HYDROCHLORIDE
Strength: 250MG **Federal Register determination that product was not discontinued or withdrawn for safety or effectiveness reasons**
Dosage Form/Route: CAPSULE;ORAL
Application: N050278 | Product #003 | TE Code: AB
Applicant: AVET PHARMACEUTICALS INC
Approved: Approved Prior to Jan 1, 1982 | RLD: Yes | RS: No | Type: RX